FAERS Safety Report 13510932 (Version 2)
Quarter: 2019Q4

REPORT INFORMATION
  Report Type: Spontaneous
  Country: US (occurrence: US)
  Receive Date: 20170503
  Receipt Date: 20191028
  Transmission Date: 20200122
  Serious: Yes (Death, Other)
  Sender: FDA-Public Use
  Company Number: US-PFIZER INC-2017194664

PATIENT
  Age: 61 Year
  Sex: Male

DRUGS (6)
  1. VIAGRA [Suspect]
     Active Substance: SILDENAFIL CITRATE
     Dosage: 50 MG, MONTHLY
     Route: 048
     Dates: start: 20050420, end: 20050420
  2. VIAGRA [Suspect]
     Active Substance: SILDENAFIL CITRATE
     Dosage: 50 MG, MONTHLY
     Route: 048
     Dates: start: 20050217, end: 20050217
  3. VIAGRA [Suspect]
     Active Substance: SILDENAFIL CITRATE
     Indication: ERECTILE DYSFUNCTION
     Dosage: UNK, 10 SAMPLES
     Route: 048
  4. VIAGRA [Suspect]
     Active Substance: SILDENAFIL CITRATE
     Dosage: 50 MG, MONTHLY
     Route: 048
     Dates: start: 20040608, end: 20040608
  5. VIAGRA [Suspect]
     Active Substance: SILDENAFIL CITRATE
     Dosage: 50 MG, MONTHLY
     Route: 048
     Dates: start: 20050926, end: 20060304
  6. VIAGRA [Suspect]
     Active Substance: SILDENAFIL CITRATE
     Dosage: 100 MG, MONTHLY
     Route: 048
     Dates: start: 20070129, end: 20080107

REACTIONS (3)
  - Depression [Unknown]
  - Metastatic malignant melanoma [Fatal]
  - Malignant melanoma [Unknown]

NARRATIVE: CASE EVENT DATE: 20090127
